FAERS Safety Report 9815025 (Version 3)
Quarter: 2014Q2

REPORT INFORMATION
  Report Type: Report from Study
  Country: CO (occurrence: CO)
  Receive Date: 20140114
  Receipt Date: 20140505
  Transmission Date: 20141212
  Serious: Yes (Hospitalization)
  Sender: FDA-Public Use
  Company Number: CO-ROCHE-1332770

PATIENT
  Age: 60 Year
  Sex: Male
  Weight: 74 kg

DRUGS (4)
  1. RANIBIZUMAB [Suspect]
     Indication: DIABETIC RETINOPATHY
     Dosage: THE LAST APPLICATION RECEIVED ON 21/OCT/2013
     Route: 050
  2. LOSARTAN [Concomitant]
  3. B COMPLEX [Concomitant]
  4. FOLIC ACID [Concomitant]

REACTIONS (3)
  - Malaise [Not Recovered/Not Resolved]
  - Infection [Recovering/Resolving]
  - Eye pain [Not Recovered/Not Resolved]
